FAERS Safety Report 6741936-6 (Version None)
Quarter: 2010Q2

REPORT INFORMATION
  Report Type: 
  Country: None (occurrence: None)
  Receive Date: 20100526
  Receipt Date: 20100519
  Transmission Date: 20101027
  Serious: Yes (Disabling)
  Sender: FDA-Public Use
  Company Number: B0653561A

PATIENT
  Age: 68 Year
  Sex: Female
  Weight: 54 kg

DRUGS (5)
  1. AVAMYS [Suspect]
     Route: 045
     Dates: start: 20100422, end: 20100507
  2. SUMATRIPTAN SUCCINATE [Concomitant]
     Indication: MIGRAINE
     Route: 048
     Dates: start: 20090701
  3. LOPERAMIDE [Concomitant]
     Route: 048
  4. EVOREL [Concomitant]
     Route: 062
  5. PROPRANOLOL [Concomitant]

REACTIONS (1)
  - MIGRAINE [None]
